FAERS Safety Report 24986581 (Version 2)
Quarter: 2025Q2

REPORT INFORMATION
  Report Type: Spontaneous
  Country: US (occurrence: US)
  Receive Date: 20250219
  Receipt Date: 20250501
  Transmission Date: 20250716
  Serious: No
  Sender: ABBVIE
  Company Number: US-ABBVIE-6138750

PATIENT
  Age: 47 Year
  Sex: Female

DRUGS (5)
  1. ARMOUR THYROID [Suspect]
     Active Substance: THYROID, PORCINE
     Indication: Hypothyroidism
     Route: 048
  2. ARMOUR THYROID [Suspect]
     Active Substance: THYROID, PORCINE
     Indication: Hypothyroidism
     Route: 048
     Dates: start: 2010
  3. ARMOUR THYROID [Suspect]
     Active Substance: THYROID, PORCINE
     Indication: Hypothyroidism
     Route: 048
  4. ARMOUR THYROID [Suspect]
     Active Substance: THYROID, PORCINE
     Indication: Hypothyroidism
     Route: 048
  5. ARMOUR THYROID [Suspect]
     Active Substance: THYROID, PORCINE
     Indication: Hypothyroidism
     Route: 048
     Dates: start: 2005

REACTIONS (6)
  - Tri-iodothyronine increased [Unknown]
  - Palpitations [Recovered/Resolved]
  - Blood test abnormal [Unknown]
  - Reverse tri-iodothyronine increased [Unknown]
  - Tri-iodothyronine abnormal [Unknown]
  - Blood thyroid stimulating hormone decreased [Unknown]

NARRATIVE: CASE EVENT DATE: 20250101
